FAERS Safety Report 9245585 (Version 1)
Quarter: 2013Q1

REPORT INFORMATION
  Report Type: Spontaneous
  Country: US (occurrence: None)
  Receive Date: 20121130
  Receipt Date: 20121130
  Transmission Date: 20140127
  Serious: Yes (Hospitalization)
  Sender: FDA-Public Use
  Company Number: 349049

PATIENT
  Age: 65 Year
  Sex: Male

DRUGS (4)
  1. NOVOLOG MIX 70/30 FLEXPEN [Suspect]
     Dosage: UNK UNK, BID, SUBCUTANEOUS
     Route: 058
     Dates: start: 2011, end: 2011
  2. METFORMIN (METFORMIN) [Concomitant]
  3. PRAVASTATIN (PRAVASTATIN) [Concomitant]
  4. FENOFIBRATE (FENOFIBRATE) (FENOFIBRATE) [Concomitant]

REACTIONS (2)
  - Drug dose omission [None]
  - Hyperglycaemic unconsciousness [None]
